FAERS Safety Report 5387814-9 (Version None)
Quarter: 2007Q3

REPORT INFORMATION
  Report Type: 
  Country: None (occurrence: None)
  Receive Date: 20070716
  Receipt Date: 20060621
  Transmission Date: 20080115
  Serious: No
  Sender: FDA-Public Use
  Company Number: A0609688A

PATIENT
  Age: 50 Year
  Sex: Female

DRUGS (2)
  1. NICORETTE (MINT) [Suspect]
     Dates: start: 20060617
  2. NICODERM CQ [Suspect]

REACTIONS (8)
  - ANXIETY [None]
  - DRUG INEFFECTIVE [None]
  - DRY MOUTH [None]
  - DYSGEUSIA [None]
  - GINGIVAL PAIN [None]
  - GLOSSODYNIA [None]
  - NICOTINE DEPENDENCE [None]
  - ORAL PAIN [None]
